FAERS Safety Report 9896125 (Version 2)
Quarter: 2014Q1

REPORT INFORMATION
  Report Type: Spontaneous
  Country: US (occurrence: US)
  Receive Date: 20140213
  Receipt Date: 20140213
  Transmission Date: 20141002
  Serious: No
  Sender: FDA-Public Use
  Company Number: US-BRISTOL-MYERS SQUIBB COMPANY-19706738

PATIENT
  Age: 52 Year
  Sex: Male

DRUGS (2)
  1. ABATACEPT SUBQ INJECTION 125MG/ML [Suspect]
     Indication: RHEUMATOID ARTHRITIS
     Dosage: LAST INJECTION ON 23OCT2013
     Dates: start: 201310
  2. PREDNISONE [Concomitant]
     Dates: start: 201310

REACTIONS (5)
  - Influenza like illness [Unknown]
  - Hypoaesthesia [Unknown]
  - Weight decreased [Unknown]
  - Joint stiffness [Unknown]
  - Rheumatoid arthritis [Unknown]
